FAERS Safety Report 7542511-6 (Version None)
Quarter: 2011Q2

REPORT INFORMATION
  Report Type: 
  Country: None (occurrence: None)
  Receive Date: 20110606
  Receipt Date: 20110531
  Transmission Date: 20111010
  Serious: Yes (Hospitalization, Other)
  Sender: FDA-Public Use
  Company Number: 2010SP031284

PATIENT
  Age: 32 Year
  Sex: Female
  Weight: 79.3795 kg

DRUGS (1)
  1. NUVARING [Suspect]
     Indication: CONTRACEPTION
     Dosage: VAG
     Route: 067
     Dates: start: 20080528, end: 20080601

REACTIONS (22)
  - SOMNOLENCE [None]
  - SNORING [None]
  - ANAEMIA [None]
  - COMPLEX REGIONAL PAIN SYNDROME [None]
  - PAIN IN EXTREMITY [None]
  - PULMONARY EMBOLISM [None]
  - DEPRESSED LEVEL OF CONSCIOUSNESS [None]
  - FATIGUE [None]
  - HEADACHE [None]
  - EXERCISE TOLERANCE DECREASED [None]
  - SYSTEMIC LUPUS ERYTHEMATOSUS [None]
  - ARTHRALGIA [None]
  - DIZZINESS [None]
  - ADJUSTMENT DISORDER [None]
  - DELIRIUM [None]
  - NEUROPATHY PERIPHERAL [None]
  - CONVULSION [None]
  - OEDEMA PERIPHERAL [None]
  - COAGULOPATHY [None]
  - PULMONARY INFARCTION [None]
  - RAYNAUD'S PHENOMENON [None]
  - MUSCULOSKELETAL STIFFNESS [None]
